FAERS Safety Report 13673079 (Version 1)
Quarter: 2017Q2

REPORT INFORMATION
  Report Type: Spontaneous
  Country: US (occurrence: US)
  Receive Date: 20170621
  Receipt Date: 20170621
  Transmission Date: 20170830
  Serious: No
  Sender: FDA-Public Use
  Company Number: None

PATIENT
  Age: 83 Year
  Sex: Female
  Weight: 56.7 kg

DRUGS (10)
  1. PROLIA [Suspect]
     Active Substance: DENOSUMAB
  2. MAGNESIUM [Concomitant]
     Active Substance: MAGNESIUM
  3. ATENOLOL. [Concomitant]
     Active Substance: ATENOLOL
  4. CENTRUM [Concomitant]
     Active Substance: VITAMINS
  5. ZETIA [Concomitant]
     Active Substance: EZETIMIBE
  6. ASPIRIN. [Concomitant]
     Active Substance: ASPIRIN
  7. VITAMIN D [Concomitant]
     Active Substance: CHOLECALCIFEROL
  8. MAGNESIUM [Concomitant]
     Active Substance: MAGNESIUM
  9. LEVOTHYROXINE. [Concomitant]
     Active Substance: LEVOTHYROXINE
  10. FLECAINIDE [Concomitant]
     Active Substance: FLECAINIDE

REACTIONS (4)
  - Arthralgia [None]
  - Groin pain [None]
  - Gait disturbance [None]
  - Pain in extremity [None]

NARRATIVE: CASE EVENT DATE: 20170421
